FAERS Safety Report 7938256-0 (Version None)
Quarter: 2011Q4

REPORT INFORMATION
  Report Type: 
  Country: None (occurrence: None)
  Receive Date: 20111123
  Receipt Date: 20111117
  Transmission Date: 20120403
  Serious: Yes (Death)
  Sender: FDA-Public Use
  Company Number: TR-COVIDIEN/TYCO HEALTHCARE/MALLINCKRODT-T201102470

PATIENT

DRUGS (1)
  1. EXALGO [Suspect]
     Indication: PAIN
     Dosage: UNK
     Route: 048

REACTIONS (1)
  - DEATH [None]
